FAERS Safety Report 4599854-8 (Version None)
Quarter: 2005Q1

REPORT INFORMATION
  Report Type: 
  Country: None (occurrence: None)
  Receive Date: 20050303
  Receipt Date: 20050216
  Transmission Date: 20050727
  Serious: Yes (Other)
  Sender: FDA-Public Use
  Company Number: USA050291008

PATIENT
  Age: 84 Year
  Sex: Male

DRUGS (2)
  1. HUMULIN R [Suspect]
     Dates: start: 20040601
  2. LANTUS [Concomitant]

REACTIONS (4)
  - DRUG HYPERSENSITIVITY [None]
  - PHARMACEUTICAL PRODUCT COMPLAINT [None]
  - RASH GENERALISED [None]
  - SQUAMOUS CELL CARCINOMA [None]
